FAERS Safety Report 7258381-X (Version None)
Quarter: 2011Q1

REPORT INFORMATION
  Report Type: 
  Country: None (occurrence: None)
  Receive Date: 20110129
  Receipt Date: 20100712
  Transmission Date: 20110831
  Serious: No
  Sender: FDA-Public Use
  Company Number: US-ABBOTT-10P-163-0656380-00

PATIENT
  Age: 52 Year
  Sex: Female

DRUGS (5)
  1. TOPROLOL [Concomitant]
     Indication: HYPERTENSION
     Dosage: 1 PILL A DAY
  2. CLARITIN [Concomitant]
     Indication: SEASONAL ALLERGY
  3. HUMIRA [Suspect]
     Indication: CROHN'S DISEASE
     Dates: start: 20100512
  4. SULFASALAZINE [Concomitant]
     Indication: PRODUCT USED FOR UNKNOWN INDICATION
     Dosage: 3 A DAY
  5. SYNTHROID [Concomitant]
     Indication: CARDIAC DISORDER
     Dosage: 1 PILL A DAY

REACTIONS (3)
  - ABSCESS [None]
  - FISTULA [None]
  - NASOPHARYNGITIS [None]
